FAERS Safety Report 18912360 (Version 1)
Quarter: 2021Q1

REPORT INFORMATION
  Report Type: Spontaneous
  Country: US (occurrence: US)
  Receive Date: 20210218
  Receipt Date: 20210218
  Transmission Date: 20210420
  Serious: No
  Sender: FDA-Public Use
  Company Number: US-009507513-2102USA006677

PATIENT
  Age: 22 Year
  Sex: Female
  Weight: 64.85 kg

DRUGS (1)
  1. NEXPLANON [Suspect]
     Active Substance: ETONOGESTREL
     Indication: CONTRACEPTION
     Dosage: 1 IMPLANT LEFT ARM
     Route: 059
     Dates: start: 20200114, end: 20210216

REACTIONS (4)
  - Mood swings [Recovering/Resolving]
  - Menstruation irregular [Recovering/Resolving]
  - Complication of device removal [Recovered/Resolved]
  - Device breakage [Recovered/Resolved]

NARRATIVE: CASE EVENT DATE: 20210216
